FAERS Safety Report 5901875-7 (Version None)
Quarter: 2008Q3

REPORT INFORMATION
  Report Type: 
  Country: None (occurrence: None)
  Receive Date: 20080929
  Receipt Date: 20080710
  Transmission Date: 20090109
  Serious: Yes (Other)
  Sender: FDA-Public Use
  Company Number: IT-BAYER-200822304GPV

PATIENT
  Age: 10 Year
  Sex: Male

DRUGS (13)
  1. FLU [Suspect]
     Indication: BONE MARROW CONDITIONING REGIMEN
     Dates: start: 20051001
  2. FLU [Suspect]
  3. AZA [Suspect]
     Indication: BONE MARROW CONDITIONING REGIMEN
  4. AZA [Suspect]
  5. HU [Suspect]
     Indication: BONE MARROW CONDITIONING REGIMEN
  6. HU [Suspect]
  7. BU [Suspect]
     Indication: BONE MARROW CONDITIONING REGIMEN
     Route: 042
  8. BU [Suspect]
     Route: 048
  9. CY [Suspect]
     Indication: BONE MARROW CONDITIONING REGIMEN
  10. TT [Suspect]
     Indication: BONE MARROW CONDITIONING REGIMEN
  11. ATGAM [Suspect]
     Indication: BONE MARROW CONDITIONING REGIMEN
  12. CSA [Suspect]
     Indication: TRANSPLANT REJECTION
  13. CSA [Suspect]

REACTIONS (3)
  - BK VIRUS INFECTION [None]
  - CYTOMEGALOVIRUS INFECTION [None]
  - VIRAL HAEMORRHAGIC CYSTITIS [None]
